FAERS Safety Report 9413841 (Version 2)
Quarter: 2013Q4

REPORT INFORMATION
  Report Type: Report from Study
  Country: US (occurrence: US)
  Receive Date: 20130723
  Receipt Date: 20131127
  Transmission Date: 20140711
  Serious: Yes (Hospitalization, Other)
  Sender: FDA-Public Use
  Company Number: US-BIOGENIDEC-2013BI062286

PATIENT
  Age: 54 Year
  Sex: Male
  Weight: 104 kg

DRUGS (14)
  1. TYSABRI [Suspect]
     Indication: MULTIPLE SCLEROSIS
     Route: 042
     Dates: start: 20090217
  2. ACETAMINOPHEN [Concomitant]
     Route: 048
  3. AMPYRA [Concomitant]
     Route: 048
  4. BACLOFEN [Concomitant]
     Route: 048
  5. BACTRIM [Concomitant]
  6. COUMADIN [Concomitant]
  7. CRESTOR [Concomitant]
  8. FLOMAX [Concomitant]
  9. HIPREX [Concomitant]
  10. LEXAPRO [Concomitant]
     Route: 048
  11. LORATADINE [Concomitant]
     Route: 048
  12. VITAMIN B12 [Concomitant]
     Dosage: DOSE UNIT:1000
  13. VITAMIN D2 [Concomitant]
  14. XANAX [Concomitant]
     Route: 048

REACTIONS (1)
  - Hip fracture [Recovered/Resolved]
